FAERS Safety Report 11719598 (Version 2)
Quarter: 2015Q4

REPORT INFORMATION
  Report Type: Spontaneous
  Country: US (occurrence: US)
  Receive Date: 20151110
  Receipt Date: 20151126
  Transmission Date: 20160304
  Serious: Yes (Other)
  Sender: FDA-Public Use
  Company Number: US-SEPTODONT-201503074

PATIENT
  Age: 29 Year
  Sex: Female
  Weight: 60 kg

DRUGS (2)
  1. BENZOCAINE 20% [Concomitant]
     Indication: LOCAL ANAESTHESIA
     Dosage: USED AS TOPICAL ANESTHETICS BEFORE INJECTION.
     Route: 061
     Dates: start: 20151023, end: 20151023
  2. SEPTOCAINE AND EPINEPHRINE [Suspect]
     Active Substance: ARTICAINE HYDROCHLORIDE\EPINEPHRINE BITARTRATE
     Indication: LOCAL ANAESTHESIA
     Dosage: 1/2 CARPULE ADMINISTERED VIA LOWER I.A. BLOCK.
     Route: 004
     Dates: start: 20151023, end: 20151023

REACTIONS (2)
  - Throat tightness [Recovered/Resolved]
  - Dyspnoea [Recovered/Resolved]

NARRATIVE: CASE EVENT DATE: 20151023
